FAERS Safety Report 10790320 (Version 2)
Quarter: 2015Q2

REPORT INFORMATION
  Report Type: Spontaneous
  Country: IT (occurrence: IT)
  Receive Date: 20150212
  Receipt Date: 20150625
  Transmission Date: 20150821
  Serious: Yes (Hospitalization)
  Sender: FDA-Public Use
  Company Number: IT-ASTRAZENECA-2015SE11911

PATIENT
  Age: 31464 Day
  Sex: Female

DRUGS (10)
  1. COUMADIN (WARFARIN) [Concomitant]
  2. MEMAC (DONEPEZIL) [Concomitant]
  3. SEROQUEL [Suspect]
     Active Substance: QUETIAPINE FUMARATE
     Indication: DRUG ABUSE
     Route: 048
     Dates: start: 20150128, end: 20150128
  4. CARDIOVASC (LERCANIDIPINE) [Concomitant]
  5. TORVAST (ATORVASTATIN) [Concomitant]
     Active Substance: ATORVASTATIN
  6. SYMBICORT (BUDESONIDE+FORMOTEROL) [Concomitant]
     Dosage: 160/4.5 MCG TURBOHALER
  7. ALPRAZOLAM. [Concomitant]
     Active Substance: ALPRAZOLAM
  8. SEROQUEL [Suspect]
     Active Substance: QUETIAPINE FUMARATE
     Indication: DRUG ABUSE
     Route: 048
  9. SPIRIVA (TIOTROPIO) [Concomitant]
  10. XERISTAR [Suspect]
     Active Substance: DULOXETINE HYDROCHLORIDE
     Indication: DRUG ABUSE
     Route: 048
     Dates: start: 20150128, end: 20150128

REACTIONS (3)
  - Dyspnoea [Recovering/Resolving]
  - Drug abuse [Recovering/Resolving]
  - Somnolence [Recovering/Resolving]

NARRATIVE: CASE EVENT DATE: 20150128
